FAERS Safety Report 13085064 (Version 1)
Quarter: 2017Q1

REPORT INFORMATION
  Report Type: Spontaneous
  Country: US (occurrence: US)
  Receive Date: 20170104
  Receipt Date: 20170104
  Transmission Date: 20170428
  Serious: No
  Sender: FDA-Public Use
  Company Number: None

PATIENT
  Age: 57 Year
  Sex: Male

DRUGS (1)
  1. ENBREL [Suspect]
     Active Substance: ETANERCEPT

REACTIONS (5)
  - Fatigue [None]
  - Sinusitis [None]
  - Sensitivity of teeth [None]
  - Bone disorder [None]
  - Therapy cessation [None]

NARRATIVE: CASE EVENT DATE: 20170103
